FAERS Safety Report 13570633 (Version 1)
Quarter: 2017Q2

REPORT INFORMATION
  Report Type: Spontaneous
  Country: US (occurrence: US)
  Receive Date: 20170523
  Receipt Date: 20170523
  Transmission Date: 20170830
  Serious: No
  Sender: FDA-Public Use
  Company Number: US-BIOGEN-2017BI00403795

PATIENT
  Sex: Male

DRUGS (2)
  1. TYSABRI [Suspect]
     Active Substance: NATALIZUMAB
     Indication: MULTIPLE SCLEROSIS
     Route: 065
     Dates: start: 20131015, end: 20131015
  2. TYSABRI [Suspect]
     Active Substance: NATALIZUMAB
     Dates: start: 20161129

REACTIONS (1)
  - Musculoskeletal disorder [Not Recovered/Not Resolved]
